FAERS Safety Report 17020316 (Version 1)
Quarter: 2019Q4

REPORT INFORMATION
  Report Type: Spontaneous
  Country: AR (occurrence: AR)
  Receive Date: 20191112
  Receipt Date: 20191112
  Transmission Date: 20200122
  Serious: Yes (Hospitalization)
  Sender: FDA-Public Use
  Company Number: AR-PFIZER INC-2019482285

PATIENT
  Age: 65 Year
  Sex: Female

DRUGS (2)
  1. CRIZOTINIB [Suspect]
     Active Substance: CRIZOTINIB
     Indication: LUNG NEOPLASM MALIGNANT
     Dosage: 250 MG, 2X/DAY
  2. SINTROM [Interacting]
     Active Substance: ACENOCOUMAROL
     Indication: PULMONARY HYPERTENSION

REACTIONS (3)
  - Mouth haemorrhage [Unknown]
  - Lip injury [Unknown]
  - Drug interaction [Unknown]
